FAERS Safety Report 22777410 (Version 2)
Quarter: 2023Q4

REPORT INFORMATION
  Report Type: Report from Study
  Country: FR (occurrence: FR)
  Receive Date: 20230802
  Receipt Date: 20231110
  Transmission Date: 20240110
  Serious: Yes (Other)
  Sender: FDA-Public Use
  Company Number: FR-GILEAD-2023-0637864

PATIENT
  Age: 66 Year
  Sex: Female

DRUGS (9)
  1. IDELALISIB [Suspect]
     Active Substance: IDELALISIB
     Indication: Waldenstrom^s macroglobulinaemia
     Dosage: 150 MG, QD
     Route: 048
     Dates: start: 20180409, end: 20180505
  2. IDELALISIB [Suspect]
     Active Substance: IDELALISIB
     Dosage: 100 MG, QD
     Route: 048
     Dates: start: 20180522, end: 20180525
  3. IDELALISIB [Suspect]
     Active Substance: IDELALISIB
     Dosage: 100 MG, QD
     Route: 048
     Dates: start: 20180618, end: 20180622
  4. OBINUTUZUMAB [Suspect]
     Active Substance: OBINUTUZUMAB
     Indication: Waldenstrom^s macroglobulinaemia recurrent
     Dosage: 1000 MG, CYCLICAL D1C1
     Route: 042
     Dates: start: 20180409, end: 20180507
  5. OBINUTUZUMAB [Suspect]
     Active Substance: OBINUTUZUMAB
     Dosage: 1000 MG, CYCLICAL D8C1
     Route: 042
     Dates: start: 20180416, end: 20180416
  6. OBINUTUZUMAB [Suspect]
     Active Substance: OBINUTUZUMAB
     Dosage: 1000 MG, CYCLICAL D15 C1
     Route: 042
     Dates: start: 20180423, end: 20180423
  7. OBINUTUZUMAB [Suspect]
     Active Substance: OBINUTUZUMAB
     Dosage: 1000 MG, CYCLICAL D1 C2
     Route: 042
     Dates: start: 20180522, end: 20180522
  8. OBINUTUZUMAB [Suspect]
     Active Substance: OBINUTUZUMAB
     Dosage: 1000 MG, CYCLICAL D1 C3
     Route: 042
     Dates: start: 20180618, end: 20180618
  9. OBINUTUZUMAB [Suspect]
     Active Substance: OBINUTUZUMAB
     Dosage: 1000 MG, CYCLICAL D1 C4
     Route: 042
     Dates: start: 20180716, end: 20180716

REACTIONS (1)
  - Hepatocellular injury [Recovered/Resolved]

NARRATIVE: CASE EVENT DATE: 20180504
